FAERS Safety Report 24203509 (Version 1)
Quarter: 2024Q3

REPORT INFORMATION
  Report Type: Spontaneous
  Country: IN (occurrence: IN)
  Receive Date: 20240813
  Receipt Date: 20240813
  Transmission Date: 20241016
  Serious: Yes (Hospitalization, Other)
  Sender: IPCA
  Company Number: IN-IPCA LABORATORIES LIMITED-IPC-2024-IN-001990

PATIENT

DRUGS (1)
  1. WARFARIN [Suspect]
     Active Substance: WARFARIN
     Indication: Hepatic vein occlusion
     Dosage: 3 MILLIGRAM, QD
     Route: 065

REACTIONS (8)
  - Spinal epidural haematoma [Recovering/Resolving]
  - Paraplegia [Recovering/Resolving]
  - Haemarthrosis [Recovering/Resolving]
  - Back pain [Recovering/Resolving]
  - Spontaneous haemorrhage [Recovering/Resolving]
  - Coagulopathy [Recovering/Resolving]
  - Oedema [Recovering/Resolving]
  - International normalised ratio increased [Recovering/Resolving]
